FAERS Safety Report 16369374 (Version 1)
Quarter: 2019Q2

REPORT INFORMATION
  Report Type: Spontaneous
  Country: ES (occurrence: ES)
  Receive Date: 20190529
  Receipt Date: 20190529
  Transmission Date: 20190711
  Serious: Yes (Other)
  Sender: FDA-Public Use
  Company Number: ES-ASTRAZENECA-2019SE78781

PATIENT
  Age: 40 Year
  Sex: Female
  Weight: 65 kg

DRUGS (11)
  1. OMEPRAZOL [Suspect]
     Active Substance: OMEPRAZOLE
     Indication: SHORT-BOWEL SYNDROME
     Dosage: 40 MG/12 H
     Route: 048
  2. LOPERAMIDE [Concomitant]
     Active Substance: LOPERAMIDE
     Indication: SHORT-BOWEL SYNDROME
  3. CALCIUM CARBONATE /CHOLECALCIFEROL 1250/400 MG [Concomitant]
     Indication: SHORT-BOWEL SYNDROME
  4. PLANTAGO OVATA [Concomitant]
     Active Substance: HERBALS\PLANTAGO OVATA LEAF
     Indication: SHORT-BOWEL SYNDROME
  5. PHYTOMENADIONE [Concomitant]
     Active Substance: PHYTONADIONE
     Indication: SHORT-BOWEL SYNDROME
     Route: 042
  6. SODIUM BICARBONATE. [Concomitant]
     Active Substance: SODIUM BICARBONATE
     Indication: SHORT-BOWEL SYNDROME
     Dosage: 500 MG/8 H
  7. PARENTERAL NUTRITION (PN)+ ENTERAL NUTRITION (EN) [Concomitant]
     Indication: SHORT-BOWEL SYNDROME
  8. PARENTERAL NUTRITION (PN)+ ENTERAL NUTRITION (EN) [Concomitant]
     Indication: SHORT-BOWEL SYNDROME
     Dosage: REDUCED TO 3 DAYS/WEEK.
  9. MCT OIL (SHORT CHAN TRIGLYCERIDES) [Concomitant]
     Indication: SHORT-BOWEL SYNDROME
  10. CHOLESTYRAMINE. [Concomitant]
     Active Substance: CHOLESTYRAMINE
     Indication: SHORT-BOWEL SYNDROME
  11. ONDANSETRON [Concomitant]
     Active Substance: ONDANSETRON
     Indication: SHORT-BOWEL SYNDROME
     Dosage: 4 MG IF REQUIRED

REACTIONS (3)
  - Jaundice [Unknown]
  - Septic shock [Unknown]
  - Off label use [Unknown]
